FAERS Safety Report 9917751 (Version 1)
Quarter: 2014Q1

REPORT INFORMATION
  Report Type: Spontaneous
  Country: AU (occurrence: AU)
  Receive Date: 20140221
  Receipt Date: 20140221
  Transmission Date: 20141002
  Serious: Yes (Death)
  Sender: FDA-Public Use
  Company Number: AU-009507513-1402AUS008513

PATIENT
  Age: 68 Year
  Sex: Male

DRUGS (4)
  1. MIRTAZAPINE [Suspect]
     Route: 048
  2. DULOXETINE HYDROCHLORIDE [Suspect]
  3. PAROXETINE HYDROCHLORIDE [Suspect]
  4. ZOLPIDEM TARTRATE [Suspect]

REACTIONS (5)
  - Toxicity to various agents [Fatal]
  - Vascular calcification [Not Recovered/Not Resolved]
  - Arteriosclerosis coronary artery [Not Recovered/Not Resolved]
  - Drug interaction [Unknown]
  - Intentional self-injury [Fatal]
